FAERS Safety Report 21297115 (Version 1)
Quarter: 2022Q3

REPORT INFORMATION
  Report Type: Spontaneous
  Country: US (occurrence: US)
  Receive Date: 20220906
  Receipt Date: 20220906
  Transmission Date: 20221027
  Serious: Yes (Hospitalization)
  Sender: FDA-Public Use
  Company Number: US-JNJFOC-20220852346

PATIENT

DRUGS (1)
  1. ACETAMINOPHEN [Suspect]
     Active Substance: ACETAMINOPHEN
     Indication: Product used for unknown indication
     Route: 048

REACTIONS (7)
  - Suicide attempt [Unknown]
  - Liver injury [Unknown]
  - Hepatic encephalopathy [Unknown]
  - Coma hepatic [Unknown]
  - Product administration error [Unknown]
  - Intentional overdose [Unknown]
  - Accidental overdose [Unknown]
